FAERS Safety Report 9751673 (Version 4)
Quarter: 2014Q1

REPORT INFORMATION
  Report Type: Spontaneous
  Country: AR (occurrence: AR)
  Receive Date: 20131213
  Receipt Date: 20140313
  Transmission Date: 20141002
  Serious: Yes (Hospitalization, Other)
  Sender: FDA-Public Use
  Company Number: AR-AMGEN-ARGSP2013086671

PATIENT
  Age: 60 Year
  Sex: Female

DRUGS (7)
  1. ENBREL [Suspect]
     Indication: RHEUMATOID ARTHRITIS
     Dosage: 50 MG, WEEKLY
     Route: 058
     Dates: start: 20060914, end: 20131021
  2. DIOXAFLEX B12                      /01316601/ [Concomitant]
     Dosage: UNK
  3. TAMOXIFEN [Concomitant]
     Indication: BREAST CANCER
     Dosage: UNK
     Dates: start: 2012
  4. DAFLON                             /00426001/ [Concomitant]
     Indication: ANGIOPATHY
     Dosage: 500 MG, 1X/DAY
  5. LEVOTHYROXINE [Concomitant]
     Indication: HYPOTHYROIDISM
     Dosage: 125 UG, 1X/DAY
  6. OMEPRAZOL                          /00661201/ [Concomitant]
     Dosage: UNK
  7. FREVIA [Concomitant]
     Indication: ASTHMA
     Dosage: UNK, 2X/DAY
     Dates: start: 2012

REACTIONS (6)
  - Pancreatitis acute [Recovering/Resolving]
  - Myalgia [Recovered/Resolved]
  - Pain [Recovered/Resolved]
  - Dyspnoea [Recovered/Resolved]
  - Pleurisy [Recovered/Resolved]
  - Asthmatic crisis [Not Recovered/Not Resolved]
